FAERS Safety Report 5647720-9 (Version None)
Quarter: 2008Q1

REPORT INFORMATION
  Report Type: 
  Country: None (occurrence: None)
  Receive Date: 20080303
  Receipt Date: 20080220
  Transmission Date: 20080703
  Serious: Yes (Life-Threatening, Other)
  Sender: FDA-Public Use
  Company Number: JP-PFIZER INC-2008014184

PATIENT
  Sex: Female

DRUGS (5)
  1. CABERGOLINE [Suspect]
     Indication: PARKINSON'S DISEASE
     Route: 048
     Dates: start: 20050714, end: 20080206
  2. CARBIDOPA AND LEVODOPA [Concomitant]
     Route: 048
  3. MUCOSTA [Concomitant]
     Indication: GASTRITIS
     Route: 048
  4. CEREKINON [Concomitant]
     Indication: SEASONAL ALLERGY
     Route: 048
  5. AMLODIN [Concomitant]
     Indication: HYPERTENSION
     Route: 048

REACTIONS (3)
  - DYSPNOEA [None]
  - PARKINSON'S DISEASE [None]
  - PLEURAL EFFUSION [None]
